FAERS Safety Report 6104162-X (Version None)
Quarter: 2009Q1

REPORT INFORMATION
  Report Type: 
  Country: None (occurrence: None)
  Receive Date: 20090305
  Receipt Date: 20090218
  Transmission Date: 20090719
  Serious: Yes (Hospitalization)
  Sender: FDA-Public Use
  Company Number: US-PFIZER INC-2009158263

PATIENT
  Sex: Male
  Weight: 115.65 kg

DRUGS (15)
  1. MARAVIROC [Suspect]
     Indication: HIV INFECTION
     Dosage: 150 MG, 2X/DAY
     Route: 048
     Dates: start: 20060220
  2. LAMIVUDINE [Concomitant]
     Dosage: UNK
     Route: 048
     Dates: start: 20060221
  3. TENOFOVIR [Concomitant]
     Dosage: UNK
     Route: 048
     Dates: start: 20060221
  4. ZIDOVUDINE [Concomitant]
     Dosage: UNK
     Route: 048
     Dates: start: 20060817
  5. DARUNAVIR [Concomitant]
     Dosage: UNK
     Route: 048
     Dates: start: 20070126
  6. RITONAVIR [Concomitant]
     Dosage: UNK
     Route: 048
     Dates: start: 20070126
  7. LUMIGAN [Concomitant]
     Dosage: UNK
     Route: 001
     Dates: start: 20070214
  8. METOLAZONE [Concomitant]
     Dosage: UNK
     Route: 048
     Dates: start: 20051027
  9. POTASSIUM CHLORIDE [Concomitant]
     Dosage: UNK
     Route: 048
     Dates: start: 20040812
  10. WARFARIN [Concomitant]
     Dosage: UNK
     Route: 048
     Dates: start: 20000710
  11. ALLOPURINOL [Concomitant]
     Dosage: UNK
     Route: 048
     Dates: start: 20001026
  12. BUMEX [Concomitant]
     Dosage: UNK
     Route: 048
     Dates: start: 20070710
  13. OXYCODONE [Concomitant]
     Dosage: UNK
     Route: 048
     Dates: start: 20051031
  14. METFORMIN [Concomitant]
     Dosage: UNK
     Route: 048
     Dates: start: 20081022
  15. OMEPRAZOLE [Concomitant]
     Dosage: UNK
     Route: 048
     Dates: start: 20060418

REACTIONS (5)
  - DYSPNOEA EXERTIONAL [None]
  - OEDEMA PERIPHERAL [None]
  - PULMONARY HYPERTENSION [None]
  - RENAL FAILURE [None]
  - RIGHT VENTRICULAR FAILURE [None]
